FAERS Safety Report 4506580-X (Version None)
Quarter: 2004Q4

REPORT INFORMATION
  Report Type: 
  Country: None (occurrence: None)
  Receive Date: 20041122
  Receipt Date: 20041112
  Transmission Date: 20050328
  Serious: Yes (Death)
  Sender: FDA-Public Use
  Company Number: PHBS2004JP15265

PATIENT
  Age: 64 Year
  Sex: Male

DRUGS (2)
  1. LAMISIL [Suspect]
     Indication: NAIL TINEA
     Dosage: 125 MG/D
     Route: 048
     Dates: start: 20030606, end: 20030705
  2. LAMISIL [Suspect]
     Dosage: 125 MG/D
     Route: 048
     Dates: start: 20040726, end: 20041015

REACTIONS (1)
  - SUDDEN DEATH [None]
